FAERS Safety Report 23612619 (Version 3)
Quarter: 2024Q2

REPORT INFORMATION
  Report Type: Spontaneous
  Country: ID (occurrence: ID)
  Receive Date: 20240308
  Receipt Date: 20240408
  Transmission Date: 20240715
  Serious: Yes (Life-Threatening, Hospitalization)
  Sender: FDA-Public Use
  Company Number: ID-BAUSCH-BL-2024-003698

PATIENT
  Age: 32 Year
  Sex: Male

DRUGS (1)
  1. DEXAMETHASONE [Suspect]
     Active Substance: DEXAMETHASONE
     Indication: Product used for unknown indication
     Route: 065

REACTIONS (2)
  - Paralysis [Recovered/Resolved]
  - Hypokalaemia [Recovered/Resolved]
